FAERS Safety Report 22593520 (Version 9)
Quarter: 2023Q4

REPORT INFORMATION
  Report Type: Spontaneous
  Country: PT (occurrence: PT)
  Receive Date: 20230613
  Receipt Date: 20231129
  Transmission Date: 20240109
  Serious: Yes (Hospitalization, Other)
  Sender: FDA-Public Use
  Company Number: PT-MYLANLABS-2023M1057428

PATIENT
  Age: 85 Year
  Sex: Female

DRUGS (13)
  1. APIXABAN [Suspect]
     Active Substance: APIXABAN
     Indication: Product used for unknown indication
     Dosage: 2.5 MG, BID, (1 TAB IN MORNING, 1 TAB IN EVENING)
     Route: 048
     Dates: start: 2018
  2. APIXABAN [Suspect]
     Active Substance: APIXABAN
     Dosage: 2.5MG 80 TABS/80 APIXABAN 2.5MG TABS 1 TOTAL
     Route: 048
  3. APIXABAN [Suspect]
     Active Substance: APIXABAN
     Dosage: 80 DOSAGE FORM, TOTAL, 2.5 MG
     Route: 048
  4. IRBESARTAN [Suspect]
     Active Substance: IRBESARTAN
     Indication: Product used for unknown indication
     Dosage: 300 MG, QD, IN THE MORNING
     Route: 048
     Dates: start: 201809
  5. IRBESARTAN [Suspect]
     Active Substance: IRBESARTAN
     Dosage: 300 MG 30 PILLS/30 IRBESARTAN 300MG TABLETS
     Route: 048
     Dates: end: 202210
  6. DIGOXIN [Suspect]
     Active Substance: DIGOXIN
     Indication: Product used for unknown indication
     Dosage: 0.13 MILLIGRAM, QD (1 IN THE MORNING)
     Route: 048
     Dates: start: 2011
  7. DIGOXIN [Suspect]
     Active Substance: DIGOXIN
     Dosage: 0.125 MG 20 TABS/20 DIGOXIN 0.125MG TABS 1 TOTAL
     Route: 048
  8. DIGOXIN [Suspect]
     Active Substance: DIGOXIN
     Dosage: 20 DOSAGE FORM, TOTAL, 20 TABLETS 0.125
     Route: 048
  9. LERCANIDIPINE [Concomitant]
     Active Substance: LERCANIDIPINE
     Dosage: 10 MILLIGRAM, QD
     Route: 065
  10. LINAGLIPTIN [Concomitant]
     Active Substance: LINAGLIPTIN
     Dosage: 5 MG, QD(1 TABLET IN THE MORNING)
     Route: 065
  11. CARVEDILOL [Concomitant]
     Active Substance: CARVEDILOL
     Dosage: 25 MG (1/2 IN THE MORNING,1/2 AT NIGHT)
     Route: 065
  12. PANTOPRAZOLE [Concomitant]
     Active Substance: PANTOPRAZOLE
     Dosage: 40 MG, QD(1 TABLET IN THE MORNING)
     Route: 065
  13. MIRTAZAPINE [Concomitant]
     Active Substance: MIRTAZAPINE
     Dosage: 15 MG, QD (1 TABLET AT NIGHT)
     Route: 065

REACTIONS (9)
  - Poisoning [Unknown]
  - Suicide attempt [Unknown]
  - Bradycardia [Recovered/Resolved]
  - Hypotension [Recovered/Resolved]
  - Toxicity to various agents [Recovered/Resolved]
  - Intentional overdose [Unknown]
  - Fatigue [Recovered/Resolved]
  - Hypertension [Recovered/Resolved]
  - Cardioactive drug level increased [Unknown]
